FAERS Safety Report 7276702-9 (Version None)
Quarter: 2011Q1

REPORT INFORMATION
  Report Type: 
  Country: None (occurrence: None)
  Receive Date: 20110204
  Receipt Date: 20110126
  Transmission Date: 20110831
  Serious: Yes (Hospitalization, Other)
  Sender: FDA-Public Use
  Company Number: US-ASTRAZENECA-2010SE56402

PATIENT
  Age: 18764 Day
  Sex: Female
  Weight: 124.3 kg

DRUGS (11)
  1. ZANTAC [Concomitant]
  2. FENOFIBRATE [Concomitant]
  3. CRESTOR [Suspect]
     Route: 048
  4. KLORCON 20 [Concomitant]
  5. MOBIC GENERIC [Concomitant]
  6. NEXIUM [Suspect]
     Indication: GASTROOESOPHAGEAL REFLUX DISEASE
     Route: 048
     Dates: start: 20010101
  7. ULTRAM [Concomitant]
  8. NEURONTIN [Concomitant]
     Indication: FIBROMYALGIA
  9. DEMADEX [Concomitant]
  10. MIRALAX [Concomitant]
  11. XANAX XR [Concomitant]

REACTIONS (5)
  - UTERINE CANCER [None]
  - POLYP [None]
  - OVARIAN CANCER [None]
  - SURGERY [None]
  - ENDOMETRIOSIS [None]
